FAERS Safety Report 5401511-2 (Version None)
Quarter: 2007Q3

REPORT INFORMATION
  Report Type: 
  Country: None (occurrence: None)
  Receive Date: 20070731
  Receipt Date: 20070719
  Transmission Date: 20080115
  Serious: Yes (Other)
  Sender: FDA-Public Use
  Company Number: JP-ROCHE-491005

PATIENT
  Age: 8 Year
  Sex: Male

DRUGS (4)
  1. TAMIFLU [Suspect]
     Route: 048
     Dates: start: 20070111, end: 20070112
  2. MUCODYNE [Concomitant]
     Dosage: FORM: ORAL (NOT OTHERWISE SPECIFIED).
     Route: 048
  3. 1 CONCOMITANT DRUG [Concomitant]
     Dosage: DRUG NAME: TROCHES (COMP.) ().  FORM: LOZENGE.  ROUTE: OROPHARINGEAL.
     Route: 050
  4. ALPINY [Concomitant]
     Dosage: GENERIC NAME REPORTED AS ACETAMINOPHEN.
     Route: 054

REACTIONS (1)
  - RESPIRATORY ARREST [None]
